FAERS Safety Report 5630970-5 (Version None)
Quarter: 2008Q1

REPORT INFORMATION
  Report Type: 
  Country: None (occurrence: None)
  Receive Date: 20080131
  Receipt Date: 20071112
  Transmission Date: 20080703
  Serious: No
  Sender: FDA-Public Use
  Company Number: 163-21880-07101091

PATIENT
  Age: 57 Year
  Sex: Male

DRUGS (6)
  1. REVLIMID [Suspect]
     Indication: MULTIPLE MYELOMA
     Dosage: SEE IMAGEDAILY X 21 DAYS/28 DAYS, ORAL
     Route: 048
     Dates: start: 20070913, end: 20071001
  2. REVLIMID [Suspect]
     Indication: MULTIPLE MYELOMA
     Dosage: SEE IMAGEDAILY X 21 DAYS/28 DAYS, ORAL
     Route: 048
     Dates: start: 20071017, end: 20071101
  3. REVLIMID [Suspect]
  4. DEXAMETHASONE TAB [Concomitant]
  5. HYDROCHLOROTHIAZIDE [Concomitant]
  6. ASPIRIN [Concomitant]

REACTIONS (7)
  - CHILLS [None]
  - NEUTROPHIL COUNT DECREASED [None]
  - OEDEMA PERIPHERAL [None]
  - PANCYTOPENIA [None]
  - PRURITUS [None]
  - PYREXIA [None]
  - RASH MACULO-PAPULAR [None]
